FAERS Safety Report 18394662 (Version 3)
Quarter: 2020Q4

REPORT INFORMATION
  Report Type: Spontaneous
  Country: JP (occurrence: JP)
  Receive Date: 20201016
  Receipt Date: 20201231
  Transmission Date: 20210114
  Serious: Yes (Death)
  Sender: FDA-Public Use
  Company Number: JP-ALLERGAN-2029754US

PATIENT
  Sex: Male

DRUGS (1)
  1. BOTOX [Suspect]
     Active Substance: ONABOTULINUMTOXINA
     Indication: MUSCLE SPASTICITY
     Dosage: 240 UNITS, SINGLE
     Route: 030
     Dates: start: 20200709, end: 20200709

REACTIONS (2)
  - Rash [Unknown]
  - Hypertensive cerebrovascular disease [Fatal]

NARRATIVE: CASE EVENT DATE: 202007
